FAERS Safety Report 4343866-6 (Version None)
Quarter: 2004Q2

REPORT INFORMATION
  Report Type: 
  Country: None (occurrence: None)
  Receive Date: 20040419
  Receipt Date: 20040406
  Transmission Date: 20050107
  Serious: Yes (Death, Hospitalization)
  Sender: FDA-Public Use
  Company Number: 04P-144-0255935-00

PATIENT
  Age: 46 Year
  Sex: Male

DRUGS (6)
  1. KALETRA [Suspect]
     Indication: HIV INFECTION
     Dosage: 3 CAPSULE, 2 IN 1 D, ORAL
     Route: 048
     Dates: start: 20020828
  2. DIDANOSINE [Concomitant]
  3. STAVUDINE [Concomitant]
  4. SEPTRIM [Concomitant]
  5. TENOFIVIR [Concomitant]
  6. MULTIVITAMIN [Concomitant]

REACTIONS (13)
  - ANOREXIA [None]
  - ASCITES [None]
  - BLOOD LACTIC ACID INCREASED [None]
  - BRADYPHRENIA [None]
  - COMA [None]
  - CONDITION AGGRAVATED [None]
  - HAEMATEMESIS [None]
  - HEPATIC CIRRHOSIS [None]
  - HEPATIC FAILURE [None]
  - PROGRESSIVE MULTIFOCAL LEUKOENCEPHALOPATHY [None]
  - REFLUX OESOPHAGITIS [None]
  - VARICES OESOPHAGEAL [None]
  - WEIGHT DECREASED [None]
